FAERS Safety Report 22385238 (Version 2)
Quarter: 2023Q2

REPORT INFORMATION
  Report Type: Spontaneous
  Country: US (occurrence: US)
  Receive Date: 20230530
  Receipt Date: 20230606
  Transmission Date: 20230721
  Serious: No
  Sender: FDA-Public Use
  Company Number: US-002147023-NVSC2023US123054

PATIENT
  Sex: Male

DRUGS (3)
  1. XIIDRA [Suspect]
     Active Substance: LIFITEGRAST
     Indication: Product used for unknown indication
     Dosage: UNK, QD
     Route: 065
     Dates: start: 20230301
  2. LEVOBUNOLOL [Concomitant]
     Active Substance: LEVOBUNOLOL
     Indication: Product used for unknown indication
     Route: 065
  3. LATANOPROST [Concomitant]
     Active Substance: LATANOPROST
     Indication: Product used for unknown indication
     Route: 065

REACTIONS (3)
  - Vision blurred [Unknown]
  - Burning sensation [Unknown]
  - Drug ineffective [Unknown]
